FAERS Safety Report 8162350-5 (Version None)
Quarter: 2012Q1

REPORT INFORMATION
  Report Type: 
  Country: None (occurrence: None)
  Receive Date: 20120221
  Receipt Date: 20120210
  Transmission Date: 20120608
  Serious: Yes (Hospitalization)
  Sender: FDA-Public Use
  Company Number: ACO_29361_2012

PATIENT
  Age: 60 Year
  Sex: Female
  Weight: 64.4108 kg

DRUGS (8)
  1. AMPYRA [Suspect]
     Indication: GAIT DISTURBANCE
     Dosage: 10 MG; BID, ORAL
     Route: 048
     Dates: start: 20110101, end: 20111201
  2. VITAMIN D NOS (VITAMIN D NOS) [Concomitant]
  3. LISINOPRIL [Concomitant]
  4. AMITRIPTYLINE HCL [Concomitant]
  5. BACLOFEN [Concomitant]
  6. MULTI-VITAMIN [Concomitant]
  7. MAGNESIUM OXIDE (MAGNESIUM OXIDE) [Concomitant]
  8. VESICARE [Concomitant]

REACTIONS (6)
  - MUSCULOSKELETAL PAIN [None]
  - BALANCE DISORDER [None]
  - ASTHENIA [None]
  - BACK PAIN [None]
  - CELLULITIS [None]
  - FALL [None]
